FAERS Safety Report 13473783 (Version 1)
Quarter: 2017Q2

REPORT INFORMATION
  Report Type: Spontaneous
  Country: SE (occurrence: SE)
  Receive Date: 20170424
  Receipt Date: 20170424
  Transmission Date: 20170830
  Serious: Yes (Hospitalization, Other)
  Sender: FDA-Public Use
  Company Number: SE-PFIZER INC-2017173713

PATIENT
  Age: 60 Year
  Sex: Male

DRUGS (10)
  1. SAPIMOL [Concomitant]
  2. LYRICA [Suspect]
     Active Substance: PREGABALIN
     Indication: NEURALGIA
     Dosage: 300 MG 2X/DAY
     Route: 048
     Dates: start: 2008
  3. PREGABALIN SANDOZ GMBH [Suspect]
     Active Substance: PREGABALIN
     Dosage: 300 MG, 1X/DAY
     Route: 048
     Dates: start: 20151009
  4. BISOPROLOL KRKA [Concomitant]
     Active Substance: BISOPROLOL FUMARATE
     Dosage: UNK
  5. SPIRIVA [Concomitant]
     Active Substance: TIOTROPIUM BROMIDE MONOHYDRATE
  6. QUETIAPIN ACTAVIS [Suspect]
     Active Substance: QUETIAPINE
     Dosage: 50 MG 1X/DAY
     Route: 048
     Dates: start: 20170220
  7. IMPUGAN /00032601/ [Concomitant]
     Active Substance: FUROSEMIDE
  8. PREGABALIN SANDOZ GMBH [Suspect]
     Active Substance: PREGABALIN
     Indication: NEURALGIA
     Dosage: 0.5 CAPSULE AT 1PM AND 1 CAPSULE AT 6PM
     Route: 048
     Dates: start: 20151008, end: 20151008
  9. CYMBALTA [Concomitant]
     Active Substance: DULOXETINE HYDROCHLORIDE
  10. SYMBICORT [Concomitant]
     Active Substance: BUDESONIDE\FORMOTEROL FUMARATE DIHYDRATE

REACTIONS (8)
  - Toxicity to various agents [Unknown]
  - Suicide attempt [Unknown]
  - Intentional product misuse [None]
  - Intentional product use issue [Unknown]
  - Overdose [Unknown]
  - Withdrawal syndrome [Unknown]
  - Feeling abnormal [Unknown]
  - Drug effect incomplete [Unknown]

NARRATIVE: CASE EVENT DATE: 20170315
